FAERS Safety Report 9692730 (Version 1)
Quarter: 2013Q4

REPORT INFORMATION
  Report Type: Spontaneous
  Country: US (occurrence: US)
  Receive Date: 20131118
  Receipt Date: 20131118
  Transmission Date: 20140711
  Serious: No
  Sender: FDA-Public Use
  Company Number: US-JNJFOC-20131107513

PATIENT
  Age: 21 Year
  Sex: Male

DRUGS (3)
  1. INVEGA [Suspect]
     Indication: ALLERGY TEST
     Route: 048
     Dates: start: 20131105, end: 20131105
  2. INVEGA [Suspect]
     Indication: PSYCHOTIC DISORDER
     Route: 048
     Dates: start: 20131105, end: 20131105
  3. INVEGA SUSTENNA [Suspect]
     Indication: PSYCHOTIC DISORDER
     Route: 030
     Dates: start: 20131106

REACTIONS (1)
  - Extrapyramidal disorder [Unknown]
